FAERS Safety Report 5324749-1 (Version None)
Quarter: 2007Q2

REPORT INFORMATION
  Report Type: 
  Country: None (occurrence: None)
  Receive Date: 20070515
  Receipt Date: 20070509
  Transmission Date: 20071010
  Serious: Yes (Other)
  Sender: FDA-Public Use
  Company Number: PHEH2007US07122

PATIENT

DRUGS (5)
  1. ZELNORM [Suspect]
     Indication: STOMACH DISCOMFORT
     Dosage: 6 MG, BID
     Route: 048
     Dates: start: 20050101, end: 20070401
  2. SYNTHROID [Concomitant]
  3. PREVACID [Concomitant]
  4. VITAMIN CAP [Concomitant]
  5. CALCIUM CHLORIDE [Concomitant]

REACTIONS (3)
  - BLINDNESS [None]
  - HYPERTENSION [None]
  - RETINAL ARTERY EMBOLISM [None]
